FAERS Safety Report 10004783 (Version 2)
Quarter: 2014Q1

REPORT INFORMATION
  Report Type: Spontaneous
  Country: JP (occurrence: JP)
  Receive Date: 20140312
  Receipt Date: 20140320
  Transmission Date: 20141002
  Serious: Yes (Other)
  Sender: FDA-Public Use
  Company Number: JP-GLAXOSMITHKLINE-B0975368A

PATIENT
  Age: 10 Year
  Sex: Male

DRUGS (1)
  1. SERETIDE (50MCG/100MCG) [Suspect]
     Indication: ASTHMA
     Dosage: 100MCG TWICE PER DAY
     Route: 055

REACTIONS (2)
  - Growth retardation [Unknown]
  - Weight decreased [Unknown]
